FAERS Safety Report 6192584-0 (Version None)
Quarter: 2009Q2

REPORT INFORMATION
  Report Type: 
  Country: None (occurrence: None)
  Receive Date: 20090518
  Receipt Date: 20090507
  Transmission Date: 20091009
  Serious: Yes (Hospitalization)
  Sender: FDA-Public Use
  Company Number: CO-AMGEN-US346648

PATIENT
  Age: 55 Year
  Sex: Female

DRUGS (3)
  1. ENBREL [Suspect]
     Indication: RHEUMATOID ARTHRITIS
     Route: 058
     Dates: start: 20070101, end: 20090101
  2. ENBREL [Suspect]
     Route: 058
     Dates: start: 20090101, end: 20090507
  3. ARCOXIA [Concomitant]
     Dosage: 120 MGM UNSPECIFIED FREQUENCY

REACTIONS (2)
  - ENCEPHALITIS [None]
  - TUBERCULOSIS [None]
